FAERS Safety Report 18294523 (Version 1)
Quarter: 2020Q3

REPORT INFORMATION
  Report Type: Report from Study
  Country: BR (occurrence: BR)
  Receive Date: 20200922
  Receipt Date: 20200922
  Transmission Date: 20201103
  Serious: Yes (Other)
  Sender: FDA-Public Use
  Company Number: BR-JNJFOC-20200904203

PATIENT
  Sex: Female
  Weight: 75 kg

DRUGS (10)
  1. STELARA [Suspect]
     Active Substance: USTEKINUMAB
     Indication: PSORIASIS
     Route: 058
     Dates: start: 20200325
  2. PREGABALINE [Concomitant]
     Active Substance: PREGABALIN
     Dosage: 1 IN THE MORNING AND 1 NIGHT
     Route: 065
  3. LOSARTAN. [Concomitant]
     Active Substance: LOSARTAN
     Indication: BLOOD PRESSURE MEASUREMENT
     Dosage: 2X PER DAY
     Route: 065
  4. GLIBENCLAMIDE [Concomitant]
     Active Substance: GLYBURIDE
     Indication: DIABETES MELLITUS
     Dosage: 5MG 2X DAY
     Route: 065
  5. SIMVASTATINE [Concomitant]
     Active Substance: SIMVASTATIN
     Indication: BLOOD CHOLESTEROL
     Dosage: 1 AT NIGHT
     Route: 065
  6. STELARA [Suspect]
     Active Substance: USTEKINUMAB
  7. CELECOXIBE [Concomitant]
     Active Substance: CELECOXIB
     Dosage: 1 ^AT NIGHT
     Route: 065
  8. METFORMIN [Concomitant]
     Active Substance: METFORMIN HYDROCHLORIDE
     Indication: DIABETES MELLITUS
     Dosage: 2 PER DAY
     Route: 065
  9. HYDROCHLOROTHIAZIDE. [Concomitant]
     Active Substance: HYDROCHLOROTHIAZIDE
     Dosage: 1 IN THE MORNING
     Route: 065
  10. TIMOLOL MALEATE. [Concomitant]
     Active Substance: TIMOLOL MALEATE
     Indication: GLAUCOMA
     Dosage: 2X A DAY 1 DROP IN THE MORNING AND 1 DROP AT NIGHT.
     Route: 047

REACTIONS (3)
  - Neuropathy peripheral [Unknown]
  - Alopecia [Unknown]
  - Psoriasis [Unknown]
